FAERS Safety Report 7268315-X (Version None)
Quarter: 2011Q1

REPORT INFORMATION
  Report Type: 
  Country: None (occurrence: None)
  Receive Date: 20110201
  Receipt Date: 20110119
  Transmission Date: 20110831
  Serious: Yes (Death)
  Sender: FDA-Public Use
  Company Number: CA-WATSON-2011-00772

PATIENT
  Age: 20 Year
  Sex: Female

DRUGS (2)
  1. RISPERIDONE [Suspect]
     Indication: PSYCHOTIC DISORDER
  2. NORTRIPTYLINE HCL [Suspect]
     Indication: PSYCHOTIC DISORDER
     Dosage: 100 MG, DAILY

REACTIONS (1)
  - PULMONARY EMBOLISM [None]
